FAERS Safety Report 7581492-6 (Version None)
Quarter: 2011Q2

REPORT INFORMATION
  Report Type: 
  Country: None (occurrence: None)
  Receive Date: 20110629
  Receipt Date: 20110617
  Transmission Date: 20111010
  Serious: Yes (Other)
  Sender: FDA-Public Use
  Company Number: PHHY2011CH54774

PATIENT
  Age: 67 Year
  Sex: Female

DRUGS (1)
  1. FENOFIBRIC ACID [Suspect]
     Indication: BREAST CANCER RECURRENT
     Dates: start: 20090101

REACTIONS (1)
  - RETINAL DETACHMENT [None]
